FAERS Safety Report 6918333-3 (Version None)
Quarter: 2010Q3

REPORT INFORMATION
  Report Type: 
  Country: None (occurrence: None)
  Receive Date: 20100811
  Receipt Date: 20100802
  Transmission Date: 20110219
  Serious: No
  Sender: FDA-Public Use
  Company Number: US-BIOGENIDEC-2010BI011721

PATIENT
  Sex: Female

DRUGS (1)
  1. TYSABRI [Suspect]
     Indication: MULTIPLE SCLEROSIS
     Route: 042
     Dates: start: 20090717, end: 20100721

REACTIONS (12)
  - BLADDER SPASM [None]
  - CHEST PAIN [None]
  - DRUG SPECIFIC ANTIBODY PRESENT [None]
  - FEELING HOT [None]
  - FLANK PAIN [None]
  - HYPERSENSITIVITY [None]
  - HYPERTENSION [None]
  - INFUSION RELATED REACTION [None]
  - MULTIPLE SCLEROSIS [None]
  - NAUSEA [None]
  - PAIN IN JAW [None]
  - TREMOR [None]
